FAERS Safety Report 24142797 (Version 1)
Quarter: 2024Q3

REPORT INFORMATION
  Report Type: Spontaneous
  Country: IN (occurrence: IN)
  Receive Date: 20240726
  Receipt Date: 20240726
  Transmission Date: 20241017
  Serious: Yes (Death)
  Sender: PFIZER
  Company Number: IN-PFIZER INC-PV202400070282

PATIENT
  Age: 52 Year
  Sex: Female

DRUGS (2)
  1. LORLATINIB [Suspect]
     Active Substance: LORLATINIB
     Dosage: 100 MG
     Route: 048
     Dates: start: 20240425, end: 20240627
  2. LORLATINIB [Suspect]
     Active Substance: LORLATINIB
     Dosage: TO TAKE THE TABLET HALF

REACTIONS (3)
  - Death [Fatal]
  - Off label use [Unknown]
  - Wrong technique in product usage process [Unknown]
